FAERS Safety Report 7575591-2 (Version None)
Quarter: 2011Q2

REPORT INFORMATION
  Report Type: 
  Country: None (occurrence: None)
  Receive Date: 20110627
  Receipt Date: 20110616
  Transmission Date: 20111010
  Serious: Yes (Hospitalization)
  Sender: FDA-Public Use
  Company Number: US-AMGEN-USASP2011030923

PATIENT
  Age: 60 Year
  Sex: Female

DRUGS (1)
  1. ENBREL [Suspect]
     Indication: ANKYLOSING SPONDYLITIS
     Dosage: 50 MG, QWK
     Dates: start: 20071203

REACTIONS (6)
  - FALL [None]
  - URTICARIA [None]
  - ROTATOR CUFF SYNDROME [None]
  - POLLAKIURIA [None]
  - MUSCLE INJURY [None]
  - JOINT INJURY [None]
